FAERS Safety Report 20212723 (Version 2)
Quarter: 2022Q1

REPORT INFORMATION
  Report Type: Spontaneous
  Country: US (occurrence: US)
  Receive Date: 20211221
  Receipt Date: 20220209
  Transmission Date: 20220423
  Serious: No
  Sender: FDA-Public Use
  Company Number: US-BIOVITRUM-2021US10685

PATIENT
  Sex: Female
  Weight: 4 kg

DRUGS (9)
  1. SYNAGIS [Suspect]
     Active Substance: PALIVIZUMAB
     Indication: Tricuspid valve stenosis
     Route: 030
     Dates: start: 20210715
  2. OMEPRAZOLE [Concomitant]
     Active Substance: OMEPRAZOLE
     Dosage: CAPSULE DR
  3. VITAMIN D-400 [Concomitant]
     Dosage: 10 MCG
  4. LASIX [Concomitant]
     Active Substance: FUROSEMIDE
  5. HEPARIN SODIUM [Concomitant]
     Active Substance: HEPARIN SODIUM
     Dosage: 0.5 PERCENTAGE NACL
  6. ASPIRIN [Concomitant]
     Active Substance: ASPIRIN
  7. SPIRONOLACTONE [Concomitant]
     Active Substance: SPIRONOLACTONE
  8. SYNAGIS [Suspect]
     Active Substance: PALIVIZUMAB
     Indication: Premature baby
  9. EPINEPHRINE [Concomitant]
     Active Substance: EPINEPHRINE

REACTIONS (4)
  - Eye infection [Unknown]
  - Therapy interrupted [Unknown]
  - COVID-19 [Unknown]
  - Inappropriate schedule of product administration [Unknown]
